FAERS Safety Report 6858607-8 (Version None)
Quarter: 2010Q3

REPORT INFORMATION
  Report Type: 
  Country: None (occurrence: None)
  Receive Date: 20100719
  Receipt Date: 20080229
  Transmission Date: 20110219
  Serious: No
  Sender: FDA-Public Use
  Company Number: US-PFIZER INC-2008012890

PATIENT
  Sex: Male
  Weight: 93 kg

DRUGS (10)
  1. CHANTIX [Suspect]
     Indication: SMOKING CESSATION THERAPY
     Dates: start: 20080128
  2. ANTABUSE [Concomitant]
     Indication: ALCOHOL ABUSE
  3. ACETYLSALICYLIC ACID [Concomitant]
  4. NEURONTIN [Concomitant]
  5. NORTRIPTYLINE HYDROCHLORIDE [Concomitant]
  6. VENLAFAXINE HYDROCHLORIDE [Concomitant]
  7. WELLBUTRIN XL [Concomitant]
  8. GEMFIBROZIL [Concomitant]
  9. SEROQUEL [Concomitant]
  10. LISINOPRIL [Concomitant]

REACTIONS (3)
  - DRUG INEFFECTIVE [None]
  - INCORRECT DOSE ADMINISTERED [None]
  - NO ADVERSE EVENT [None]
